FAERS Safety Report 4708704-8 (Version None)
Quarter: 2005Q2

REPORT INFORMATION
  Report Type: 
  Country: None (occurrence: None)
  Receive Date: 20050629
  Receipt Date: 20050503
  Transmission Date: 20051028
  Serious: No
  Sender: FDA-Public Use
  Company Number: 05P-163-0299522-00

PATIENT
  Age: 71 Year
  Sex: Female
  Weight: 104.5 kg

DRUGS (6)
  1. HUMIRA [Suspect]
     Indication: RHEUMATOID ARTHRITIS
     Dosage: 40 MG, 1 IN 2 WK, SUBCUTANEOUS
     Route: 058
     Dates: start: 20040801
  2. LEVOTHYROXINE SODIUM [Concomitant]
  3. ACETAMINOPHEN [Concomitant]
  4. VICODIN [Concomitant]
  5. HYDROCHLOROTHIAZIDE [Concomitant]
  6. CHOLESTEROL MEDICATION [Concomitant]

REACTIONS (2)
  - RASH MACULAR [None]
  - SKIN EXFOLIATION [None]
